FAERS Safety Report 12239876 (Version 1)
Quarter: 2016Q2

REPORT INFORMATION
  Report Type: Spontaneous
  Country: US (occurrence: US)
  Receive Date: 20160405
  Receipt Date: 20160405
  Transmission Date: 20160815
  Serious: No
  Sender: FDA-Public Use
  Company Number: US-ROCHE-1509510

PATIENT
  Sex: Female

DRUGS (1)
  1. XENICAL [Suspect]
     Active Substance: ORLISTAT
     Indication: PRODUCT USED FOR UNKNOWN INDICATION
     Dosage: XENICAL CAPSULES (HARD) 120 MG IN PLASTIC BOTTLE 90 EA US
     Route: 065

REACTIONS (5)
  - Constipation [Unknown]
  - Product quality issue [Unknown]
  - Weight increased [Unknown]
  - Bowel movement irregularity [Unknown]
  - Drug ineffective [Unknown]
